FAERS Safety Report 4385909-X (Version None)
Quarter: 2004Q2

REPORT INFORMATION
  Report Type: 
  Country: None (occurrence: None)
  Receive Date: 20040628
  Receipt Date: 20040614
  Transmission Date: 20050107
  Serious: Yes (Hospitalization)
  Sender: FDA-Public Use
  Company Number: FR-GLAXOSMITHKLINE-B0336773A

PATIENT
  Age: 4 Month
  Sex: Male
  Weight: 5.6 kg

DRUGS (8)
  1. RANIPLEX [Suspect]
     Indication: GASTROOESOPHAGEAL REFLUX DISEASE
     Dosage: 50MG PER DAY
     Route: 042
     Dates: start: 20040506, end: 20040509
  2. BACTRIM [Suspect]
     Indication: PNEUMOCYSTIS CARINII PNEUMONIA
     Dosage: 240MG TWICE PER DAY
     Route: 042
     Dates: start: 20040507, end: 20040510
  3. SOLU-MEDROL [Suspect]
     Indication: PNEUMOCYSTIS CARINII PNEUMONIA
     Dosage: 10MG PER DAY
     Route: 042
     Dates: start: 20040507, end: 20040512
  4. VANCOCIN HCL [Suspect]
     Dosage: 230MG PER DAY
     Route: 042
     Dates: start: 20040505, end: 20040508
  5. TEGELINE [Suspect]
     Dosage: 3G PER DAY
     Route: 042
     Dates: start: 20040507, end: 20040509
  6. ROCEPHIN [Suspect]
     Dosage: 500MG PER DAY
     Route: 042
     Dates: start: 20040505, end: 20040512
  7. ACETAMINOPHEN [Concomitant]
     Dosage: 90MG FOUR TIMES PER DAY
     Route: 042
     Dates: start: 20040401
  8. HYPNOVEL [Concomitant]
     Route: 042
     Dates: start: 20040401

REACTIONS (3)
  - AGRANULOCYTOSIS [None]
  - IMMUNODEFICIENCY [None]
  - PNEUMOCYSTIS CARINII PNEUMONIA [None]
